FAERS Safety Report 6468763-1 (Version None)
Quarter: 2009Q4

REPORT INFORMATION
  Report Type: 
  Country: None (occurrence: None)
  Receive Date: 20091203
  Receipt Date: 20091026
  Transmission Date: 20100525
  Serious: No
  Sender: FDA-Public Use
  Company Number: US-BAYER-200938688NA

PATIENT
  Age: 47 Year
  Sex: Male

DRUGS (2)
  1. ULTRAVIST 300 [Suspect]
     Indication: COMPUTERISED TOMOGRAM THORAX
     Dosage: AS USED: 120 ML  UNIT DOSE: 300 ML
     Route: 042
     Dates: start: 20091026, end: 20091026
  2. XANAX [Concomitant]

REACTIONS (2)
  - PRURITUS [None]
  - RASH [None]
